FAERS Safety Report 9384447 (Version 1)
Quarter: 2013Q3

REPORT INFORMATION
  Report Type: Spontaneous
  Country: US (occurrence: US)
  Receive Date: 20130705
  Receipt Date: 20130705
  Transmission Date: 20140515
  Serious: No
  Sender: FDA-Public Use
  Company Number: US-009507513-1306USA014156

PATIENT
  Sex: Female

DRUGS (2)
  1. STROMECTOL [Suspect]
     Indication: INFESTATION
     Dosage: 200 MICROGRAM, ONCE
     Route: 048
  2. ATARAX (ALPRAZOLAM) [Concomitant]

REACTIONS (6)
  - Skin discolouration [Unknown]
  - Vitamin D deficiency [Unknown]
  - Anxiety disorder [Unknown]
  - Immune system disorder [Unknown]
  - Depression [Unknown]
  - Drug ineffective [Unknown]
